FAERS Safety Report 24046541 (Version 3)
Quarter: 2024Q3

REPORT INFORMATION
  Report Type: Spontaneous
  Country: US (occurrence: US)
  Receive Date: 20240703
  Receipt Date: 20240810
  Transmission Date: 20241016
  Serious: Yes (Hospitalization)
  Sender: SANOFI AVENTIS
  Company Number: US-SA-SAC20240627000361

PATIENT
  Age: 60 Year
  Sex: Female

DRUGS (2)
  1. DUPIXENT [Suspect]
     Active Substance: DUPILUMAB
     Indication: Dermatitis atopic
     Dosage: 600 MG, 1X
     Dates: start: 202404, end: 202404
  2. DUPIXENT [Suspect]
     Active Substance: DUPILUMAB
     Dosage: 300 MG, QOW
     Dates: start: 2024

REACTIONS (2)
  - Spinal osteoarthritis [Unknown]
  - Spinal stenosis [Unknown]

NARRATIVE: CASE EVENT DATE: 20240101
